FAERS Safety Report 18080127 (Version 1)
Quarter: 2020Q3

REPORT INFORMATION
  Report Type: Spontaneous
  Country: CN (occurrence: CN)
  Receive Date: 20200728
  Receipt Date: 20200728
  Transmission Date: 20201103
  Serious: Yes (Hospitalization)
  Sender: FDA-Public Use
  Company Number: CN-ASTRAZENECA-2020SE91814

PATIENT
  Age: 1725 Week
  Sex: Female
  Weight: 53 kg

DRUGS (6)
  1. QUETIAPINE FUMARATE. [Suspect]
     Active Substance: QUETIAPINE FUMARATE
     Indication: DEPRESSION
     Route: 048
     Dates: start: 20200101, end: 20200706
  2. SODIUM VALPROATE [Suspect]
     Active Substance: VALPROATE SODIUM
     Indication: DEPRESSION
     Route: 048
     Dates: start: 20200101, end: 20200706
  3. ESCITALOPRAM OXALATE. [Concomitant]
     Active Substance: ESCITALOPRAM OXALATE
     Indication: DEPRESSION
     Route: 048
     Dates: start: 20200101, end: 20200706
  4. BICYCLOL [Concomitant]
     Active Substance: BICYCLOL
  5. LEXAPRO [Concomitant]
     Active Substance: ESCITALOPRAM OXALATE
  6. ENTECAVIR. [Concomitant]
     Active Substance: ENTECAVIR

REACTIONS (8)
  - Cough [Recovering/Resolving]
  - Tremor [Unknown]
  - Thrombocytopenia [Recovering/Resolving]
  - Ecchymosis [Unknown]
  - Leukopenia [Recovering/Resolving]
  - Dry mouth [Recovering/Resolving]
  - Neutropenia [Recovering/Resolving]
  - Drug-induced liver injury [Unknown]

NARRATIVE: CASE EVENT DATE: 20200629
